FAERS Safety Report 9882247 (Version 1)
Quarter: 2014Q1

REPORT INFORMATION
  Report Type: Spontaneous
  Country: IT (occurrence: IT)
  Receive Date: 20140207
  Receipt Date: 20140207
  Transmission Date: 20141002
  Serious: Yes (Other)
  Sender: FDA-Public Use
  Company Number: PHHY2014IT012395

PATIENT
  Age: 85 Year
  Sex: Male

DRUGS (9)
  1. GLYCERYL TRINITRATE [Suspect]
     Dosage: 10 MG, DAILY
     Route: 062
     Dates: start: 20130101, end: 20131216
  2. LISINOPRIL [Suspect]
     Dosage: 10 MG, DAILY
     Route: 048
     Dates: start: 20130101, end: 20131216
  3. FUROSEMIDE [Suspect]
     Dosage: UNK UKN, UNK
     Dates: start: 20130101, end: 20131216
  4. AMIODARONE [Suspect]
     Dosage: UNK UKN, UNK
     Dates: start: 20130101, end: 20131216
  5. TAMSULOSIN [Suspect]
     Dosage: UNK UKN, UNK
     Dates: start: 20130101, end: 20131213
  6. CARVEDILOL [Suspect]
     Dosage: 6.25 MG, DAILY
     Route: 048
     Dates: start: 20130101, end: 20131216
  7. CARVEDILOL [Suspect]
     Dosage: UNK UKN, UNK
  8. LUVION [Suspect]
     Dosage: 25 MG, DAILY
     Route: 048
     Dates: start: 20130101, end: 20131216
  9. ACETYLSALICYLIC ACID [Concomitant]
     Dosage: 100 MG, UNK
     Route: 048

REACTIONS (1)
  - Syncope [Recovering/Resolving]
